FAERS Safety Report 4755501-3 (Version None)
Quarter: 2005Q3

REPORT INFORMATION
  Report Type: 
  Country: None (occurrence: None)
  Receive Date: 20050830
  Receipt Date: 20050204
  Transmission Date: 20060218
  Serious: No
  Sender: FDA-Public Use
  Company Number: US-BRISTOL-MYERS SQUIBB COMPANY-12849618

PATIENT
  Age: 33 Year
  Sex: Female
  Weight: 136 kg

DRUGS (1)
  1. ABILIFY [Suspect]
     Indication: SCHIZOPHRENIA
     Route: 048
     Dates: start: 20040618

REACTIONS (3)
  - FATIGUE [None]
  - MENSTRUATION IRREGULAR [None]
  - OEDEMA PERIPHERAL [None]
